FAERS Safety Report 7699330-X (Version None)
Quarter: 2011Q3

REPORT INFORMATION
  Report Type: 
  Country: None (occurrence: None)
  Receive Date: 20110819
  Receipt Date: 20110812
  Transmission Date: 20111222
  Serious: Yes (Other)
  Sender: FDA-Public Use
  Company Number: US-BAYER-201037229NA

PATIENT
  Sex: Male
  Weight: 93 kg

DRUGS (39)
  1. LASIX [Concomitant]
     Dosage: 40MG AS NEEDED
     Route: 048
  2. DILTIAZEM [Concomitant]
     Dosage: 10/HR
     Route: 042
     Dates: start: 20031023, end: 20031023
  3. PROTAMINE [Concomitant]
     Dosage: 350 MG
     Route: 042
     Dates: start: 20031023, end: 20031023
  4. FENTANYL [Concomitant]
     Dosage: UNK
     Route: 042
     Dates: start: 20010820, end: 20010820
  5. TRASYLOL [Suspect]
     Dosage: 1 ML, TEST DOSE
     Route: 042
     Dates: start: 20031023, end: 20031023
  6. GLUCOTROL [Concomitant]
  7. INSULIN [Concomitant]
     Dosage: 30 UNITS
     Route: 042
     Dates: start: 20031023, end: 20031023
  8. REGLAN [Concomitant]
     Dosage: 10 MG
     Route: 042
     Dates: start: 20031023, end: 20031023
  9. DOPAMINE HCL [Concomitant]
     Dosage: UNK
     Route: 042
     Dates: start: 20010820, end: 20010820
  10. LIDOCAINE [Concomitant]
     Dosage: 200 MG
     Route: 042
     Dates: start: 20031023, end: 20031023
  11. PHENYLEPHRINE HCL [Concomitant]
     Dosage: UNK
     Route: 041
     Dates: start: 20031023, end: 20031023
  12. TRASYLOL [Suspect]
     Dosage: 200 CC OVER 5 HOURS (INFUSION RATE 50 ML/HR)
     Route: 042
     Dates: start: 20031023, end: 20031023
  13. METFORMIN HYDROCHLORIDE [Concomitant]
     Dosage: 1000MG TWICE DAILY
     Route: 048
  14. INSULIN [Concomitant]
     Dosage: 30 UNITS
     Route: 042
  15. COREG [Concomitant]
     Dosage: 6.25MG TWICE DAILY
  16. THROMBIN LOCAL SOLUTION [Concomitant]
     Dosage: 5000 UNITS X 5
     Route: 042
     Dates: start: 20031023, end: 20031023
  17. DOPAMINE HCL [Concomitant]
     Dosage: 10/HR
     Route: 042
     Dates: start: 20031023
  18. PLATELETS [Concomitant]
     Dosage: 4 U, UNK
     Dates: start: 20031023
  19. PRIMACOR [Concomitant]
     Dosage: 0.5 UG/KG/MIN
     Route: 042
     Dates: start: 20031023, end: 20031023
  20. FRESH FROZEN PLASMA [Concomitant]
     Dosage: 2 U, UNK
     Dates: start: 20031023
  21. ACETYLSALICYLIC ACID SRT [Concomitant]
     Dosage: 325MG DAILY
     Route: 048
  22. LISINOPRIL [Concomitant]
     Dosage: 20MG TWICE DAILY
     Route: 048
  23. PRANDIN [Concomitant]
     Dosage: 1MG IN MORNING AND AT NOON, 2MG AT NIGHT
     Route: 048
  24. MANNITOL [Concomitant]
     Dosage: 12.5 G, UNK
     Route: 042
     Dates: start: 20010820, end: 20010820
  25. AVANDIA [Concomitant]
     Dosage: 8 MG, QD
     Route: 048
  26. VANCOMYCIN [Concomitant]
     Dosage: 3 G
     Route: 042
     Dates: start: 20031023, end: 20031023
  27. ZANTAC [Concomitant]
     Dosage: 50 MG
     Route: 042
     Dates: start: 20031023, end: 20031023
  28. ANCEF [Concomitant]
     Dosage: 1 G, UNK
     Route: 042
     Dates: start: 20010820, end: 20010820
  29. CONTRAST MEDIA [Suspect]
     Indication: CATHETERISATION CARDIAC
     Dosage: UNK
     Dates: start: 20031016
  30. TRASYLOL [Suspect]
     Indication: CORONARY ARTERY BYPASS
     Dates: start: 20011001, end: 20011015
  31. PLAVIX [Concomitant]
     Dosage: 75MG DAILY
     Route: 048
  32. LASIX [Concomitant]
     Dosage: 20 MG
     Route: 042
     Dates: start: 20031023, end: 20031023
  33. LIPITOR [Concomitant]
     Dosage: 40MG DAILY
  34. VERSED [Concomitant]
     Dosage: 2 MG
     Route: 042
     Dates: start: 20031023, end: 20031023
  35. ZESTRIL [Concomitant]
     Dosage: 40 MG, QD
     Route: 048
  36. NITROGLYCERIN [Concomitant]
     Dosage: DRIP
     Route: 041
     Dates: start: 20031023
  37. BENADRYL [ACRIVASTINE] [Concomitant]
     Dosage: 25 MG
     Dates: start: 20031023, end: 20031023
  38. HEPARIN [Concomitant]
     Dosage: 29,000 UNITS
     Route: 042
     Dates: start: 20031023, end: 20031023
  39. HEPARIN [Concomitant]
     Dosage: 29000 U, UNK
     Route: 042
     Dates: start: 20010820, end: 20010820

REACTIONS (9)
  - RENAL FAILURE [None]
  - EMOTIONAL DISTRESS [None]
  - ANXIETY [None]
  - FEAR [None]
  - INJURY [None]
  - ANHEDONIA [None]
  - RENAL FAILURE ACUTE [None]
  - PAIN [None]
  - DEPRESSION [None]
